FAERS Safety Report 4871946-5 (Version None)
Quarter: 2005Q4

REPORT INFORMATION
  Report Type: 
  Country: None (occurrence: None)
  Receive Date: 20051230
  Receipt Date: 20051216
  Transmission Date: 20060501
  Serious: Yes (Other)
  Sender: FDA-Public Use
  Company Number: GB200512002924

PATIENT
  Age: 13 Year
  Sex: Male

DRUGS (1)
  1. ATOMOXETINE HYDROCHLORIDE (ATOMOXETINE HYDROCHLORIDE) [Suspect]
     Indication: ATTENTION DEFICIT/HYPERACTIVITY DISORDER
     Dates: start: 20030101

REACTIONS (1)
  - HEPATITIS [None]
